FAERS Safety Report 5682901-X (Version None)
Quarter: 2008Q1

REPORT INFORMATION
  Report Type: 
  Country: None (occurrence: None)
  Receive Date: 20080327
  Receipt Date: 20080128
  Transmission Date: 20080703
  Serious: Yes (Death)
  Sender: FDA-Public Use
  Company Number: US-TYCO HEALTHCARE/MALLINCKRODT-T200800420

PATIENT

DRUGS (11)
  1. MORPHINE [Suspect]
     Route: 048
  2. OXYCODONE HCL [Suspect]
     Route: 048
  3. RESTORIL [Suspect]
     Route: 048
  4. ACETAMINOPHEN [Suspect]
     Route: 048
  5. DIPHENHYDRAMINE HCL [Suspect]
     Route: 048
  6. VERAPAMIL [Suspect]
     Route: 048
  7. PROMETHAZINE [Suspect]
     Route: 048
  8. CYCLOBENZAPRINE HCL [Suspect]
     Route: 048
  9. ZOLPIDEM [Suspect]
     Route: 048
  10. CARISOPRODOL [Suspect]
     Route: 048
  11. UNKNOWN DRUG [Suspect]
     Route: 048

REACTIONS (1)
  - CARDIO-RESPIRATORY ARREST [None]
